FAERS Safety Report 8666179 (Version 2)
Quarter: 2012Q4

REPORT INFORMATION
  Report Type: Report from Study
  Country: JP (occurrence: JP)
  Receive Date: 20120716
  Receipt Date: 20121214
  Transmission Date: 20130627
  Serious: Yes (Other)
  Sender: FDA-Public Use
  Company Number: JP-VERTEX PHARMACEUTICALS INC.-AE-2012-010042

PATIENT
  Age: 66 Year
  Sex: Male

DRUGS (15)
  1. VX-950 (TELAPREVIR) [Suspect]
     Indication: CHRONIC HEPATITIS C
     Dosage: 2250 mg, qd
     Route: 048
     Dates: start: 20120320, end: 20120410
  2. VX-950 (TELAPREVIR) [Suspect]
     Dosage: 1500 mg, qd
     Route: 048
     Dates: start: 20120411, end: 20120515
  3. VX-950 (TELAPREVIR) [Suspect]
     Dosage: 500 mg, qd
     Route: 048
     Dates: start: 20120522, end: 20120528
  4. VX-950 (TELAPREVIR) [Suspect]
     Dosage: 750 mg, qd
     Route: 048
     Dates: start: 20120529, end: 20120611
  5. RIBAVIRIN [Suspect]
     Indication: CHRONIC HEPATITIS C
     Dosage: 600 mg, qd
     Route: 048
     Dates: start: 20120320, end: 20120416
  6. RIBAVIRIN [Suspect]
     Dosage: 400 mg, qd
     Route: 048
     Dates: start: 20120417, end: 20120507
  7. RIBAVIRIN [Suspect]
     Dosage: 200 mg, qd
     Route: 048
     Dates: start: 20120508, end: 20120515
  8. RIBAVIRIN [Suspect]
     Dosage: 200 mg, qd
     Route: 048
     Dates: start: 20120605, end: 20120611
  9. RIBAVIRIN [Suspect]
     Dosage: 400 mg, qd
     Route: 048
     Dates: start: 20120612, end: 20120716
  10. RIBAVIRIN [Suspect]
     Dosage: 500,400 and 600 mg, qod
     Route: 048
     Dates: start: 20120717
  11. PEGINTERFERON ALFA-2B [Suspect]
     Indication: CHRONIC HEPATITIS C
     Dosage: 1.5 ?g/kg, qw
     Route: 058
     Dates: start: 20120320, end: 20120508
  12. PEGINTERFERON ALFA-2B [Suspect]
     Dosage: 0.85 ?g/kg, qw
     Route: 058
     Dates: start: 20120515, end: 20120522
  13. PEGINTERFERON ALFA-2B [Suspect]
     Dosage: 1.0 ?g/kg, qw
     Route: 058
     Dates: start: 20120529
  14. HARNAL [Concomitant]
     Dosage: 0.2 mg, qd
     Route: 048
  15. ALOSITOL [Concomitant]
     Dosage: 100 mg, qd
     Route: 048
     Dates: start: 20120403

REACTIONS (1)
  - Retinopathy [Not Recovered/Not Resolved]
